FAERS Safety Report 8609370-1 (Version None)
Quarter: 2012Q3

REPORT INFORMATION
  Report Type: 
  Country: None (occurrence: None)
  Receive Date: 20120821
  Receipt Date: 20120716
  Transmission Date: 20120928
  Serious: Yes (Death, Hospitalization)
  Sender: FDA-Public Use
  Company Number: FR-009507513-1204FRA00093

PATIENT

DRUGS (6)
  1. RABEPRAZOLE SODIUM [Concomitant]
     Indication: OESOPHAGITIS
     Dosage: 10 MG, QD
     Route: 048
     Dates: end: 20120709
  2. ALFUZOSIN HYDROCHLORIDE [Concomitant]
     Indication: PROSTATIC ADENOMA
     Dosage: 10 MG, QD
     Route: 048
  3. FERROUS SULFATE TAB [Concomitant]
     Indication: ANAEMIA
     Dosage: 160 MG, QD
     Route: 048
     Dates: end: 20120709
  4. BRONCHODUAL [Concomitant]
     Indication: DYSPNOEA
     Dosage: 3 DF, QD
     Route: 055
  5. SITAGLIPTIN PHOSPHATE/METFORMIN HYDROCHLORIDE [Suspect]
     Indication: TYPE 2 DIABETES MELLITUS
     Dosage: 1000 MG-50
     Route: 048
     Dates: start: 20100309, end: 20120215
  6. FENOFIBRATE [Concomitant]
     Indication: DYSLIPIDAEMIA
     Dosage: 145 MG, QD
     Route: 048

REACTIONS (1)
  - BLADDER TRANSITIONAL CELL CARCINOMA STAGE III [None]
